FAERS Safety Report 20924656 (Version 1)
Quarter: 2022Q2

REPORT INFORMATION
  Report Type: Spontaneous
  Country: US (occurrence: US)
  Receive Date: 20220607
  Receipt Date: 20220607
  Transmission Date: 20220721
  Serious: Yes (Other)
  Sender: FDA-Public Use
  Company Number: US-SA-SAC20220602000851

PATIENT
  Age: 59 Year
  Sex: Female

DRUGS (1)
  1. ZANTAC [Suspect]
     Active Substance: RANITIDINE HYDROCHLORIDE
     Indication: Dyspepsia
     Dosage: UNK, QD
     Dates: start: 199901, end: 201606

REACTIONS (3)
  - Bladder cancer stage IV [Recovered/Resolved]
  - Gastric cancer stage IV [Recovered/Resolved]
  - Colon cancer stage IV [Recovered/Resolved]

NARRATIVE: CASE EVENT DATE: 20200413
